FAERS Safety Report 23217892 (Version 2)
Quarter: 2023Q4

REPORT INFORMATION
  Report Type: Report from Study
  Country: IN (occurrence: IN)
  Receive Date: 20231122
  Receipt Date: 20231129
  Transmission Date: 20240109
  Serious: Yes (Other)
  Sender: FDA-Public Use
  Company Number: IN-PFIZER INC-PV202300058820

PATIENT
  Age: 5 Year
  Sex: Male
  Weight: 16.4 kg

DRUGS (1)
  1. TALIGLUCERASE ALFA [Suspect]
     Active Substance: TALIGLUCERASE ALFA
     Indication: Gaucher^s disease
     Dosage: 200 IU, CYCLIC (EVERY 2 WEEKS), 6 VIALS
     Route: 042

REACTIONS (2)
  - Thrombocytopenia [Unknown]
  - Growth retardation [Unknown]
